FAERS Safety Report 5804143-7 (Version None)
Quarter: 2008Q3

REPORT INFORMATION
  Report Type: 
  Country: None (occurrence: None)
  Receive Date: 20080709
  Receipt Date: 20080630
  Transmission Date: 20090109
  Serious: Yes (Hospitalization)
  Sender: FDA-Public Use
  Company Number: PHHY2008JP13096

PATIENT

DRUGS (8)
  1. SIMULECT [Suspect]
     Indication: RENAL TRANSPLANT
     Dosage: 20 MG, ONCE/SINGLE
     Route: 042
     Dates: start: 20071023
  2. SIMULECT [Suspect]
     Dosage: 20 MG, ONCE/SINGLE
     Route: 042
     Dates: start: 20071027
  3. PROGRAF [Concomitant]
     Indication: RENAL TRANSPLANT
     Dosage: 8 MG, UNK
     Route: 048
     Dates: start: 20071021
  4. PROGRAF [Concomitant]
     Dosage: 8 MG, UNK
     Route: 048
  5. PROGRAF [Concomitant]
     Dosage: 1.6 MG, UNK
     Route: 042
     Dates: start: 20071023, end: 20071029
  6. SOLU-MEDROL [Concomitant]
     Indication: RENAL TRANSPLANT
     Dosage: 250 MG, UNK
     Route: 042
     Dates: start: 20071023, end: 20071029
  7. MEDROL [Concomitant]
     Indication: RENAL TRANSPLANT
     Dosage: 40 MG, UNK
     Route: 048
     Dates: start: 20071025
  8. BREDININ [Concomitant]
     Indication: RENAL TRANSPLANT
     Dosage: 300 MG, UNK
     Route: 048
     Dates: start: 20071026

REACTIONS (3)
  - BLOOD CREATININE INCREASED [None]
  - COMPLICATIONS OF TRANSPLANTED KIDNEY [None]
  - SURGERY [None]
